FAERS Safety Report 5645950-3 (Version None)
Quarter: 2008Q1

REPORT INFORMATION
  Report Type: 
  Country: None (occurrence: None)
  Receive Date: 20080229
  Receipt Date: 20080215
  Transmission Date: 20080703
  Serious: Yes (Hospitalization)
  Sender: FDA-Public Use
  Company Number: JP-GENENTECH-256520

PATIENT
  Sex: Female

DRUGS (34)
  1. TRASTUZUMAB [Suspect]
     Indication: BREAST CANCER METASTATIC
     Dosage: 198 MG, UNK
     Route: 041
     Dates: start: 20071221, end: 20080201
  2. TAXOTERE [Suspect]
     Indication: BREAST CANCER METASTATIC
     Dosage: 88 MG, Q3W
     Route: 042
     Dates: start: 20071221, end: 20080201
  3. LORNOXICAM [Suspect]
     Indication: NEURALGIA
     Dosage: 8 MG, QD
     Route: 048
     Dates: start: 20071119, end: 20080214
  4. DEXAMETHASONE SODIUM PHOSPHATE [Suspect]
     Indication: PREMEDICATION
     Dosage: 20 MG, Q3W
     Route: 041
     Dates: start: 20071221, end: 20080201
  5. BETAMETHASONE [Suspect]
     Indication: PROPHYLAXIS
     Dosage: 1 MG, BID
     Route: 048
     Dates: start: 20071221, end: 20080205
  6. BETAMETHASONE [Suspect]
     Dates: start: 20071221, end: 20080122
  7. BETAMETHASONE [Suspect]
     Dates: start: 20080118, end: 20080201
  8. ALCLOXA [Concomitant]
     Indication: DRUG USE FOR UNKNOWN INDICATION
     Dates: start: 20080125, end: 20080131
  9. ALUMINUM CHLOROHYDRATE [Concomitant]
     Indication: DRUG USE FOR UNKNOWN INDICATION
     Dates: start: 20080125, end: 20080131
  10. DEQUALINIUM CHLORIDE [Concomitant]
     Indication: DRUG USE FOR UNKNOWN INDICATION
     Dates: start: 20080104, end: 20080214
  11. DOGMATYL [Concomitant]
     Indication: DRUG USE FOR UNKNOWN INDICATION
     Dates: start: 20071221, end: 20080205
  12. HIRUDOID [Concomitant]
     Indication: DRUG USE FOR UNKNOWN INDICATION
     Dates: start: 20080125, end: 20080201
  13. KENALOG [Concomitant]
     Indication: DRUG USE FOR UNKNOWN INDICATION
     Dates: start: 20080104, end: 20080201
  14. KETOPROFEN [Concomitant]
     Indication: DRUG USE FOR UNKNOWN INDICATION
     Dates: start: 20061012, end: 20080214
  15. KYTRIL [Concomitant]
     Indication: DRUG USE FOR UNKNOWN INDICATION
     Dates: start: 20071221, end: 20080201
  16. LIDOMEX [Concomitant]
     Indication: DRUG USE FOR UNKNOWN INDICATION
     Dates: start: 20080104, end: 20080201
  17. METHYLPREDNISOLONE [Concomitant]
     Indication: DRUG USE FOR UNKNOWN INDICATION
     Dates: start: 20080125, end: 20080131
  18. MUCOSTA [Concomitant]
     Indication: DRUG USE FOR UNKNOWN INDICATION
     Dates: start: 20080118, end: 20080214
  19. NASEA (JAPAN) [Concomitant]
     Indication: DRUG USE FOR UNKNOWN INDICATION
     Dates: start: 20071227, end: 20080207
  20. NEOMYCIN SULFATE [Concomitant]
     Indication: DRUG USE FOR UNKNOWN INDICATION
     Dates: start: 20080125, end: 20080131
  21. NOVAMIN [Concomitant]
     Indication: DRUG USE FOR UNKNOWN INDICATION
     Dates: start: 20071221, end: 20080205
  22. PRAVASTATIN [Concomitant]
     Indication: DRUG USE FOR UNKNOWN INDICATION
     Dates: end: 20080214
  23. PRIMPERAN INJ [Concomitant]
     Indication: DRUG USE FOR UNKNOWN INDICATION
     Dates: start: 20071227, end: 20071228
  24. GLYSENNID [Concomitant]
     Indication: DRUG USE FOR UNKNOWN INDICATION
     Dates: start: 20080104, end: 20080212
  25. ROHYPNOL [Concomitant]
     Indication: DRUG USE FOR UNKNOWN INDICATION
     Dates: start: 20071119, end: 20080117
  26. SELBEX [Concomitant]
     Indication: DRUG USE FOR UNKNOWN INDICATION
     Dates: start: 20061114, end: 20080214
  27. SOLANAX [Concomitant]
     Indication: DRUG USE FOR UNKNOWN INDICATION
     Dates: start: 20071119, end: 20080214
  28. SULFUR [Concomitant]
     Indication: DRUG USE FOR UNKNOWN INDICATION
     Dates: start: 20080125, end: 20080131
  29. TRYPTANOL [Concomitant]
     Indication: DRUG USE FOR UNKNOWN INDICATION
     Dates: start: 20071228, end: 20080214
  30. VOLTAREN [Concomitant]
     Indication: DRUG USE FOR UNKNOWN INDICATION
     Dates: start: 20071221, end: 20071221
  31. WHITE PETROLATUM [Concomitant]
     Indication: DRUG USE FOR UNKNOWN INDICATION
  32. XYLOCAINE [Concomitant]
     Indication: DRUG USE FOR UNKNOWN INDICATION
     Dates: start: 20061130, end: 20080122
  33. ZANTAC 150 [Concomitant]
     Indication: DRUG USE FOR UNKNOWN INDICATION
     Dates: start: 20071221, end: 20080208
  34. ZOLPIDEM TARTRATE [Concomitant]
     Indication: DRUG USE FOR UNKNOWN INDICATION
     Dates: start: 20080118, end: 20080214

REACTIONS (1)
  - GASTRIC ULCER HAEMORRHAGE [None]
